FAERS Safety Report 13242899 (Version 2)
Quarter: 2017Q1

REPORT INFORMATION
  Report Type: Spontaneous
  Country: US (occurrence: US)
  Receive Date: 20170216
  Receipt Date: 20170322
  Transmission Date: 20170428
  Serious: No
  Sender: FDA-Public Use
  Company Number: US-009507513-1702USA001055

PATIENT
  Age: 31 Year
  Sex: Female
  Weight: 68.03 kg

DRUGS (1)
  1. IMPLANON [Suspect]
     Active Substance: ETONOGESTREL
     Indication: CONTRACEPTION
     Dosage: EVERY 3 YEARS, LEFT ARM-IMPLANT
     Route: 059

REACTIONS (5)
  - Menorrhagia [Unknown]
  - Implant site pain [Unknown]
  - Breast tenderness [Unknown]
  - Depression [Unknown]
  - Incorrect drug administration duration [Unknown]

NARRATIVE: CASE EVENT DATE: 20100428
